FAERS Safety Report 14909321 (Version 5)
Quarter: 2021Q1

REPORT INFORMATION
  Report Type: Report from Study
  Country: AU (occurrence: AU)
  Receive Date: 20180517
  Receipt Date: 20210121
  Transmission Date: 20210419
  Serious: Yes (Hospitalization, Other)
  Sender: FDA-Public Use
  Company Number: AU-EXELIXIS-XL18418013995

PATIENT
  Age: 40 Year
  Sex: Male
  Weight: 82 kg

DRUGS (14)
  1. BACTRIM [Concomitant]
     Active Substance: SULFAMETHOXAZOLE\TRIMETHOPRIM
     Indication: HEPATITIS
     Dosage: 1 DOSAGE FORM
     Route: 048
     Dates: start: 20180224, end: 20180509
  2. NIVOLUMAB [Suspect]
     Active Substance: NIVOLUMAB
     Indication: RENAL CELL CARCINOMA
     Dosage: 247 MILLIGRAM
     Route: 042
     Dates: start: 20180131, end: 20180131
  3. PREDNISOLONE. [Concomitant]
     Active Substance: PREDNISOLONE
     Indication: HEPATITIS
     Dosage: 25 MILLIGRAM
     Route: 048
     Dates: start: 20180404, end: 20180419
  4. BETAMETHASONE. [Concomitant]
     Active Substance: BETAMETHASONE
     Indication: DERMATITIS
     Dosage: 1 DOSAGE FORM
     Route: 061
     Dates: start: 20180221
  5. IPILIMUMAB [Suspect]
     Active Substance: IPILIMUMAB
     Indication: RENAL CELL CARCINOMA
     Dosage: 83 MG
     Dates: start: 20180131, end: 20180131
  6. TEMAZEPAM. [Concomitant]
     Active Substance: TEMAZEPAM
     Dosage: 10 MILLIGRAM
     Route: 048
     Dates: start: 20180315
  7. CABOZANTINIB [Suspect]
     Active Substance: CABOZANTINIB
     Indication: RENAL CELL CARCINOMA
     Dosage: 40 MILLIGRAM
     Route: 048
     Dates: start: 20180131, end: 20180131
  8. CABOZANTINIB [Suspect]
     Active Substance: CABOZANTINIB
     Dosage: 40 MILLIGRAM
     Route: 048
     Dates: start: 20180430, end: 20180515
  9. ACYCLOVIR. [Concomitant]
     Active Substance: ACYCLOVIR
     Dosage: UNK
  10. PANTOPRAZOLE [Concomitant]
     Active Substance: PANTOPRAZOLE
     Indication: HEPATITIS
     Dosage: 40 MILLIGRAM
     Route: 048
     Dates: start: 20180223, end: 20180511
  11. PREDNISOLONE. [Concomitant]
     Active Substance: PREDNISOLONE
     Dosage: 2.5 MILLIGRAM
     Route: 048
     Dates: start: 20180512, end: 20180524
  12. TEMAZEPAM. [Concomitant]
     Active Substance: TEMAZEPAM
     Indication: FATIGUE
     Dosage: 10 MILLIGRAM
     Route: 048
     Dates: start: 20180314
  13. PREDNISOLONE. [Concomitant]
     Active Substance: PREDNISOLONE
     Dosage: 5 MILLIGRAM
     Route: 048
     Dates: start: 20180428, end: 20180511
  14. PREDNISOLONE. [Concomitant]
     Active Substance: PREDNISOLONE
     Dosage: 10 MILLIGRAM
     Route: 048
     Dates: start: 20180420, end: 20180427

REACTIONS (1)
  - Myocardial infarction [Recovered/Resolved]

NARRATIVE: CASE EVENT DATE: 20180430
